FAERS Safety Report 16738389 (Version 3)
Quarter: 2019Q3

REPORT INFORMATION
  Report Type: Spontaneous
  Country: BR (occurrence: BR)
  Receive Date: 20190825
  Receipt Date: 20190926
  Transmission Date: 20191005
  Serious: Yes (Death, Hospitalization)
  Sender: FDA-Public Use
  Company Number: BR-CELGENEUS-BRA-20190806428

PATIENT
  Age: 96 Year
  Sex: Female

DRUGS (1)
  1. VIDAZA [Suspect]
     Active Substance: AZACITIDINE
     Indication: MYELODYSPLASTIC SYNDROME
     Route: 065
     Dates: start: 20190127, end: 201908

REACTIONS (9)
  - Multiple organ dysfunction syndrome [Unknown]
  - Coma [Unknown]
  - Hyperglycaemia [Unknown]
  - Asthenia [Unknown]
  - Cardio-respiratory arrest [Fatal]
  - Fall [Fatal]
  - Cerebral haematoma [Fatal]
  - Head injury [Fatal]
  - Platelet count decreased [Unknown]

NARRATIVE: CASE EVENT DATE: 20190813
